FAERS Safety Report 7897542-3 (Version None)
Quarter: 2011Q4

REPORT INFORMATION
  Report Type: 
  Country: None (occurrence: None)
  Receive Date: 20111107
  Receipt Date: 20111103
  Transmission Date: 20120403
  Serious: Yes (Death, Hospitalization, Disabling)
  Sender: FDA-Public Use
  Company Number: NZ-B.I. PHARMACEUTICALS,INC./RIDGEFIELD-2011-AU-00633AU

PATIENT
  Sex: Female

DRUGS (7)
  1. ALENDRONATE WITH VIT D [Concomitant]
     Dates: start: 20110706
  2. PRADAXA [Suspect]
     Indication: ATRIAL FIBRILLATION
     Dosage: 220 MG
     Dates: start: 20110704, end: 20110717
  3. FUROSEMIDE [Concomitant]
     Dosage: 80 MG
     Dates: start: 20060919
  4. PARACODE [Concomitant]
  5. SPIRONOLACTONE [Concomitant]
     Dates: start: 20110317
  6. CILAZAPRIL [Concomitant]
     Dates: start: 20110404
  7. ACETAMINOPHEN [Concomitant]

REACTIONS (5)
  - HAEMATOMA [None]
  - FALL [None]
  - HIP FRACTURE [None]
  - PROCEDURAL COMPLICATION [None]
  - HAEMORRHAGE [None]
